FAERS Safety Report 18914936 (Version 2)
Quarter: 2021Q2

REPORT INFORMATION
  Report Type: Spontaneous
  Country: US (occurrence: US)
  Receive Date: 20210218
  Receipt Date: 20210509
  Transmission Date: 20210717
  Serious: No
  Sender: FDA-Public Use
  Company Number: US-ELI_LILLY_AND_COMPANY-US202102002784

PATIENT
  Age: 76 Year
  Sex: Female
  Weight: 61.2 kg

DRUGS (5)
  1. ELIQUIS [Concomitant]
     Active Substance: APIXABAN
     Indication: PRODUCT USED FOR UNKNOWN INDICATION
     Dosage: UNK, UNKNOWN
  2. TADALAFIL. [Suspect]
     Active Substance: TADALAFIL
     Indication: PULMONARY ARTERIAL HYPERTENSION
     Dosage: UNK UNK, UNKNOWN
     Route: 065
  3. TYVASO [Suspect]
     Active Substance: TREPROSTINIL
     Indication: PULMONARY ARTERIAL HYPERTENSION
     Dosage: UNK UNK, QID (3?9 BREATHS)
     Route: 055
     Dates: start: 20201123
  4. TADALAFIL. [Suspect]
     Active Substance: TADALAFIL
     Dosage: UNK UNK, UNKNOWN
     Route: 065
  5. TYVASO [Suspect]
     Active Substance: TREPROSTINIL
     Dosage: UNK UNK, QID (3?9 BREATHS)
     Route: 055

REACTIONS (8)
  - Mobility decreased [Unknown]
  - Frequent bowel movements [Unknown]
  - Feeling abnormal [Unknown]
  - Mucous stools [Unknown]
  - Fluid retention [Unknown]
  - Malaise [Unknown]
  - Hypotension [Not Recovered/Not Resolved]
  - Diarrhoea [Unknown]

NARRATIVE: CASE EVENT DATE: 20210428
